FAERS Safety Report 14371735 (Version 2)
Quarter: 2018Q1

REPORT INFORMATION
  Report Type: Spontaneous
  Country: US (occurrence: US)
  Receive Date: 20180110
  Receipt Date: 20180326
  Transmission Date: 20180509
  Serious: Yes (Other)
  Sender: FDA-Public Use
  Company Number: US-BAYER-2018-005256

PATIENT
  Age: 37 Year
  Sex: Male
  Weight: 136.5 kg

DRUGS (3)
  1. GADAVIST [Suspect]
     Active Substance: GADOBUTROL
     Indication: DEPRESSION
     Dosage: UNK
     Dates: start: 20161020, end: 20161020
  2. GADAVIST [Suspect]
     Active Substance: GADOBUTROL
     Indication: NUCLEAR MAGNETIC RESONANCE IMAGING BRAIN
     Dosage: 13.5 ML, ONCE LEFT HAND (13.5 ML OVER 30 SEC)
     Route: 042
     Dates: start: 20180109, end: 20180109
  3. GADAVIST [Suspect]
     Active Substance: GADOBUTROL
     Indication: ARNOLD-CHIARI MALFORMATION
     Dosage: UNK
     Dates: start: 20110401

REACTIONS (1)
  - Seizure [Recovering/Resolving]

NARRATIVE: CASE EVENT DATE: 20180109
